FAERS Safety Report 11252789 (Version 1)
Quarter: 2015Q3

REPORT INFORMATION
  Report Type: Spontaneous
  Country: US (occurrence: US)
  Receive Date: 20150708
  Receipt Date: 20150708
  Transmission Date: 20151125
  Serious: Yes (Life-Threatening, Other)
  Sender: FDA-Public Use
  Company Number: US-ALVA-AMCO PHARMACAL COMPANIES, INC.-1040410

PATIENT
  Age: 40 Year
  Sex: Female

DRUGS (1)
  1. DIUREX WATER PILLS [Suspect]
     Active Substance: CAFFEINE\MAGNESIUM SALICYLATE
     Indication: ANALGESIC THERAPY
     Route: 048
     Dates: start: 20150629, end: 20150629

REACTIONS (3)
  - Hypersensitivity [Recovering/Resolving]
  - Urticaria [None]
  - Hypotension [None]

NARRATIVE: CASE EVENT DATE: 20150629
